FAERS Safety Report 17450149 (Version 1)
Quarter: 2020Q1

REPORT INFORMATION
  Report Type: Spontaneous
  Country: US (occurrence: US)
  Receive Date: 20200207
  Receipt Date: 20200207
  Transmission Date: 20200409
  Serious: Yes (Other)
  Sender: FDA-Public Use
  Company Number: None

PATIENT
  Age: 77 Year
  Sex: Female
  Weight: 63.5 kg

DRUGS (16)
  1. PROLIA [Suspect]
     Active Substance: DENOSUMAB
  2. CLARINEX [Concomitant]
     Active Substance: DESLORATADINE
  3. NASONEX [Concomitant]
     Active Substance: MOMETASONE FUROATE
  4. VAGIFEM [Concomitant]
     Active Substance: ESTRADIOL
  5. VALSARTAN HCTZ [Concomitant]
     Active Substance: HYDROCHLOROTHIAZIDE\VALSARTAN
  6. PATADAY [Concomitant]
     Active Substance: OLOPATADINE HYDROCHLORIDE
  7. ZYLET [Concomitant]
     Active Substance: LOTEPREDNOL ETABONATE\TOBRAMYCIN
  8. MOMENTSONE FUROATE SOLUTION [Concomitant]
  9. TACROLIMUS. [Concomitant]
     Active Substance: TACROLIMUS
  10. CLINDAMYCIN HCL [Concomitant]
     Active Substance: CLINDAMYCIN HYDROCHLORIDE
  11. FOLBIC [Concomitant]
     Active Substance: CYANOCOBALAMIN\FOLIC ACID\PYRIDOXINE
  12. NAFTIN [Concomitant]
     Active Substance: NAFTIFINE HYDROCHLORIDE
  13. RECLAST [Suspect]
     Active Substance: ZOLEDRONIC ACID
  14. RABEPRAZOLE [Concomitant]
     Active Substance: RABEPRAZOLE
  15. ERYTHROMYCIN OPHTHALMIC OINTMENT [Concomitant]
     Active Substance: ERYTHROMYCIN
  16. DESONIDE CREAM [Concomitant]
     Active Substance: DESONIDE

REACTIONS (3)
  - Hypoaesthesia [None]
  - Tooth disorder [None]
  - Paraesthesia [None]

NARRATIVE: CASE EVENT DATE: 20190829
